FAERS Safety Report 22588797 (Version 1)
Quarter: 2023Q2

REPORT INFORMATION
  Report Type: Spontaneous
  Country: JP (occurrence: JP)
  Receive Date: 20230612
  Receipt Date: 20230612
  Transmission Date: 20230722
  Serious: Yes (Other)
  Sender: FDA-Public Use
  Company Number: JP-GLAXOSMITHKLINE-JP2023JPN079402

PATIENT

DRUGS (1)
  1. FLOLAN [Suspect]
     Active Substance: EPOPROSTENOL SODIUM
     Indication: Heritable pulmonary arterial hypertension
     Dosage: UNK UNK, CO
     Route: 042

REACTIONS (3)
  - Vascular device occlusion [Recovered/Resolved]
  - Adhesion [Recovered/Resolved]
  - Therapeutic product effect incomplete [Unknown]
